FAERS Safety Report 10272338 (Version 1)
Quarter: 2014Q2

REPORT INFORMATION
  Report Type: Spontaneous
  Country: US (occurrence: None)
  Receive Date: 20140630
  Receipt Date: 20140630
  Transmission Date: 20141212
  Serious: Yes (Hospitalization, Other)
  Sender: FDA-Public Use
  Company Number: None

PATIENT
  Age: 85 Year
  Sex: Male
  Weight: 93.8 kg

DRUGS (1)
  1. ALBUMIN [Suspect]
     Indication: HYPOALBUMINAEMIA
     Dates: start: 20131104, end: 20131107

REACTIONS (7)
  - Dyspnoea [None]
  - Transfusion reaction [None]
  - Heart rate increased [None]
  - Blood pressure increased [None]
  - Feeling abnormal [None]
  - Supraventricular tachycardia [None]
  - Hypotension [None]
